FAERS Safety Report 4750831-3 (Version None)
Quarter: 2005Q3

REPORT INFORMATION
  Report Type: 
  Country: None (occurrence: None)
  Receive Date: 20050822
  Receipt Date: 20050811
  Transmission Date: 20060218
  Serious: Yes (Death)
  Sender: FDA-Public Use
  Company Number: 163-20785-05070286

PATIENT
  Age: 54 Year
  Sex: Male
  Weight: 77.1115 kg

DRUGS (20)
  1. THALOMID [Suspect]
     Indication: MULTIPLE MYELOMA
     Dosage: 50-200 MG, DAILY, ORAL
     Route: 048
     Dates: start: 20050323, end: 20050501
  2. ARANESP [Suspect]
     Indication: ANAEMIA
     Dosage: SEE IMAGE
     Route: 058
     Dates: start: 20050420, end: 20050420
  3. ARANESP [Suspect]
     Indication: ANAEMIA
     Dosage: SEE IMAGE
     Route: 058
     Dates: start: 20050504, end: 20050504
  4. ARANESP [Suspect]
     Indication: ANAEMIA
     Dosage: SEE IMAGE
     Route: 058
     Dates: start: 20050518, end: 20050518
  5. DECADRON [Suspect]
     Indication: MULTIPLE MYELOMA
     Dosage: SEE IMAGE
     Dates: start: 20050201
  6. DECADRON [Suspect]
     Indication: MULTIPLE MYELOMA
     Dosage: SEE IMAGE
     Dates: start: 20050323
  7. DECADRON [Suspect]
     Indication: MULTIPLE MYELOMA
     Dosage: SEE IMAGE
     Dates: start: 20050420
  8. DECADRON [Suspect]
     Indication: MULTIPLE MYELOMA
     Dosage: SEE IMAGE
     Dates: start: 20050504
  9. DECADRON [Suspect]
     Indication: MULTIPLE MYELOMA
     Dosage: SEE IMAGE
     Dates: start: 20050518
  10. ZOMETA [Suspect]
     Indication: HYPERCALCAEMIA OF MALIGNANCY
     Dosage: SEE IMAGE
     Dates: start: 20050323, end: 20050323
  11. ZOMETA [Suspect]
     Indication: HYPERCALCAEMIA OF MALIGNANCY
     Dosage: SEE IMAGE
     Dates: start: 20050420, end: 20050420
  12. ZOMETA [Suspect]
     Indication: HYPERCALCAEMIA OF MALIGNANCY
     Dosage: SEE IMAGE
     Dates: start: 20050518, end: 20050518
  13. MS CONTIN [Concomitant]
  14. PERCOCET [Concomitant]
  15. ALLOPURINOL [Concomitant]
  16. PHOSLO [Concomitant]
  17. RENAGEL [Concomitant]
  18. COLACE (DOCUSATE SODIUM) [Concomitant]
  19. TOPROL-XL [Concomitant]
  20. CARAFATE [Concomitant]

REACTIONS (8)
  - BACK PAIN [None]
  - DISEASE PROGRESSION [None]
  - DYSPNOEA [None]
  - HAEMATOCRIT DECREASED [None]
  - HAEMOGLOBIN DECREASED [None]
  - PAIN [None]
  - SUDDEN DEATH [None]
  - WEIGHT DECREASED [None]
